FAERS Safety Report 7657086-0 (Version None)
Quarter: 2011Q3

REPORT INFORMATION
  Report Type: 
  Country: None (occurrence: None)
  Receive Date: 20110804
  Receipt Date: 20100910
  Transmission Date: 20111222
  Serious: No
  Sender: FDA-Public Use
  Company Number: US-GLAXOSMITHKLINE-A0880668A

PATIENT
  Age: 89 Year
  Sex: Male

DRUGS (19)
  1. CALCIUM ACETATE [Concomitant]
  2. OMEGA OIL [Concomitant]
  3. VITAMIN D [Concomitant]
  4. ADVAIR DISKUS 100/50 [Suspect]
     Indication: ASTHMA
     Dosage: 1PUFF TWICE PER DAY
     Route: 055
     Dates: start: 20100918
  5. GARLIC [Concomitant]
  6. VITAMIN B COMPLEX CAP [Concomitant]
  7. B-12 VITAMIN [Concomitant]
  8. UNSPECIFIED MEDICATION [Concomitant]
  9. RAMIPRIL [Concomitant]
  10. PARSLEY [Concomitant]
  11. LEVOTHYROXINE SODIUM [Concomitant]
  12. FERROUS SULFATE TAB [Concomitant]
  13. CELEBREX [Concomitant]
  14. MAGNESIUM [Concomitant]
  15. ASCORBIC ACID [Concomitant]
  16. OREGANO OIL [Concomitant]
  17. BIOTIN [Concomitant]
  18. COREG CR [Concomitant]
  19. CPAP [Concomitant]

REACTIONS (5)
  - SWOLLEN TONGUE [None]
  - DYSPHAGIA [None]
  - DRUG INEFFECTIVE [None]
  - DYSPHONIA [None]
  - DYSPNOEA [None]
